FAERS Safety Report 5533432-9 (Version None)
Quarter: 2007Q4

REPORT INFORMATION
  Report Type: 
  Country: None (occurrence: None)
  Receive Date: 20071204
  Receipt Date: 20071126
  Transmission Date: 20080405
  Serious: Yes (Other)
  Sender: FDA-Public Use
  Company Number: JP-ASTRAZENECA-2007AP07621

PATIENT
  Age: 25692 Day
  Sex: Male

DRUGS (4)
  1. ANAPEINE INJECTION [Suspect]
     Indication: COMPLEX REGIONAL PAIN SYNDROME
     Route: 008
     Dates: start: 20070928, end: 20071029
  2. TOFRANIL [Concomitant]
     Route: 048
     Dates: start: 20070921, end: 20071029
  3. NEUROTROPIN [Concomitant]
     Route: 048
     Dates: start: 20070921, end: 20071029
  4. AMARYL [Concomitant]
     Route: 048
     Dates: end: 20071029

REACTIONS (1)
  - HEPATIC FUNCTION ABNORMAL [None]
